FAERS Safety Report 12836276 (Version 2)
Quarter: 2017Q2

REPORT INFORMATION
  Report Type: Spontaneous
  Country: GB (occurrence: GB)
  Receive Date: 20161011
  Receipt Date: 20170407
  Transmission Date: 20170830
  Serious: Yes (Other)
  Sender: FDA-Public Use
  Company Number: GB-JNJFOC-20161005547

PATIENT
  Age: 51 Year
  Sex: Male
  Weight: 93 kg

DRUGS (3)
  1. METFORMIN [Concomitant]
     Active Substance: METFORMIN HYDROCHLORIDE
     Route: 065
  2. INVOKANA [Suspect]
     Active Substance: CANAGLIFLOZIN
     Indication: TYPE 2 DIABETES MELLITUS
     Route: 065
     Dates: start: 201512
  3. GLICLAZIDE [Concomitant]
     Active Substance: GLICLAZIDE
     Route: 065

REACTIONS (4)
  - Glycosylated haemoglobin increased [Unknown]
  - Weight decreased [Unknown]
  - Diarrhoea [Unknown]
  - Polyuria [Unknown]

NARRATIVE: CASE EVENT DATE: 201604
